FAERS Safety Report 16128606 (Version 1)
Quarter: 2019Q1

REPORT INFORMATION
  Report Type: Spontaneous
  Country: IT (occurrence: IT)
  Receive Date: 20190328
  Receipt Date: 20190328
  Transmission Date: 20190418
  Serious: Yes (Other)
  Sender: FDA-Public Use
  Company Number: IT-SA-2019SA079732

PATIENT
  Age: 78 Year
  Sex: Male
  Weight: 55 kg

DRUGS (10)
  1. FLUOROURACIL. [Suspect]
     Active Substance: FLUOROURACIL
     Dosage: 3744 MG, QCY
     Route: 042
     Dates: start: 20190121, end: 20190121
  2. FLUOROURACIL. [Suspect]
     Active Substance: FLUOROURACIL
     Indication: ADENOCARCINOMA GASTRIC
     Dosage: 624 MG, QCY
     Route: 040
     Dates: start: 20190121, end: 20190121
  3. FLUOROURACIL. [Suspect]
     Active Substance: FLUOROURACIL
     Dosage: 624 MG, QCY
     Route: 040
     Dates: start: 20190218, end: 20190218
  4. LEVOLEUCOVORIN [LEVOFOLINIC ACID] [Concomitant]
     Dosage: 312 MG, QCY
     Route: 042
     Dates: start: 20190218, end: 20190218
  5. OXALIPLATIN. [Suspect]
     Active Substance: OXALIPLATIN
     Indication: ADENOCARCINOMA GASTRIC
     Dosage: 106 MG, QCY
     Route: 042
     Dates: start: 20190121, end: 20190121
  6. OXALIPLATIN. [Suspect]
     Active Substance: OXALIPLATIN
     Dosage: 106 MG, QCY
     Route: 042
     Dates: start: 20190218, end: 20190218
  7. FLUOROURACIL. [Suspect]
     Active Substance: FLUOROURACIL
     Dosage: 3744 MG, QCY
     Route: 042
     Dates: start: 20190218, end: 20190218
  8. SEQUACOR [Concomitant]
     Active Substance: BISOPROLOL
     Route: 065
  9. LEVOLEUCOVORIN [LEVOFOLINIC ACID] [Concomitant]
     Indication: ADENOCARCINOMA GASTRIC
     Dosage: 312 MG, QCY
     Route: 042
     Dates: start: 20190121, end: 20190121
  10. LIMPIDEX [Concomitant]
     Active Substance: LANSOPRAZOLE
     Route: 065

REACTIONS (2)
  - Oedema peripheral [Recovering/Resolving]
  - Anuria [Recovering/Resolving]

NARRATIVE: CASE EVENT DATE: 20190226
